FAERS Safety Report 4827758-1 (Version None)
Quarter: 2005Q4

REPORT INFORMATION
  Report Type: 
  Country: None (occurrence: None)
  Receive Date: 20051110
  Receipt Date: 20051103
  Transmission Date: 20060501
  Serious: Yes (Life-Threatening, Hospitalization)
  Sender: FDA-Public Use
  Company Number: FLX20050013

PATIENT
  Age: 4 Year
  Sex: Female

DRUGS (4)
  1. FLUOXETINE HCL [Suspect]
     Indication: ACUTE STRESS DISORDER
     Dosage: 5 MG DAILY PO
     Route: 048
     Dates: start: 20040101, end: 20040101
  2. LINEZOLID [Suspect]
     Indication: THERMAL BURN
     Dosage: 140 MG Q12H PO
     Route: 048
     Dates: start: 20040101, end: 20040101
  3. FENTANYL [Suspect]
     Indication: PAIN
     Dosage: 200 MCG ONCE PO
     Route: 048
     Dates: start: 20040101, end: 20040101
  4. FENTANYL [Suspect]
     Indication: PREMEDICATION
     Dosage: 200 MCG ONCE PO
     Route: 048
     Dates: start: 20040101, end: 20040101

REACTIONS (3)
  - DRUG INTERACTION [None]
  - POST PROCEDURAL COMPLICATION [None]
  - SEROTONIN SYNDROME [None]
